FAERS Safety Report 15775529 (Version 1)
Quarter: 2018Q4

REPORT INFORMATION
  Report Type: Spontaneous
  Country: FR (occurrence: FR)
  Receive Date: 20181231
  Receipt Date: 20181231
  Transmission Date: 20190205
  Serious: Yes (Other)
  Sender: FDA-Public Use
  Company Number: FR-TEVA-2018-FR-992858

PATIENT
  Age: 16 Year
  Sex: Female
  Weight: 50 kg

DRUGS (1)
  1. LEFLUNOMIDE. [Suspect]
     Active Substance: LEFLUNOMIDE
     Indication: ANKYLOSING SPONDYLITIS
     Route: 048
     Dates: start: 20180607, end: 20180608

REACTIONS (2)
  - Rash [Recovered/Resolved]
  - Vestibular neuronitis [Recovered/Resolved]

NARRATIVE: CASE EVENT DATE: 20180607
